FAERS Safety Report 10050607 (Version 1)
Quarter: 2014Q2

REPORT INFORMATION
  Report Type: Spontaneous
  Country: US (occurrence: US)
  Receive Date: 20140401
  Receipt Date: 20140401
  Transmission Date: 20141212
  Serious: No
  Sender: FDA-Public Use
  Company Number: US-ASTRAZENECA-2013SE63248

PATIENT
  Sex: Male

DRUGS (1)
  1. NEXIUM [Suspect]
     Route: 048
     Dates: start: 201307

REACTIONS (5)
  - Weight decreased [Unknown]
  - Vomiting [Unknown]
  - Aphagia [Unknown]
  - Hiccups [Unknown]
  - Eructation [Unknown]
